FAERS Safety Report 4655970-3 (Version None)
Quarter: 2005Q2

REPORT INFORMATION
  Report Type: 
  Country: None (occurrence: None)
  Receive Date: 20050505
  Receipt Date: 20050308
  Transmission Date: 20051028
  Serious: Yes (Death, Hospitalization)
  Sender: FDA-Public Use
  Company Number: 800325

PATIENT
  Sex: Male

DRUGS (1)
  1. DIANEAL PD-2 W/ DEXTROSE 2.5% IN PLASTIC CONTAINER [Suspect]
     Dates: start: 20030729

REACTIONS (17)
  - ACUTE PSYCHOSIS [None]
  - ANAEMIA [None]
  - AZOTAEMIA [None]
  - DEHYDRATION [None]
  - GASTROINTESTINAL HAEMORRHAGE [None]
  - GENERAL PHYSICAL HEALTH DETERIORATION [None]
  - HYPOKALAEMIA [None]
  - HYPOPROTEINAEMIA [None]
  - HYPOTHERMIA [None]
  - MALNUTRITION [None]
  - MEDICATION ERROR [None]
  - PERITONITIS [None]
  - SEPSIS [None]
  - SEPTIC SHOCK [None]
  - TREATMENT NONCOMPLIANCE [None]
  - VOMITING [None]
  - WRONG TECHNIQUE IN DRUG USAGE PROCESS [None]
